FAERS Safety Report 7275442-X (Version None)
Quarter: 2011Q1

REPORT INFORMATION
  Report Type: 
  Country: None (occurrence: None)
  Receive Date: 20110204
  Receipt Date: 20110121
  Transmission Date: 20110831
  Serious: Yes (Other)
  Sender: FDA-Public Use
  Company Number: US-BRACCO-005559

PATIENT
  Sex: Female
  Weight: 58.05 kg

DRUGS (50)
  1. ALL OTHER THERAPEUTIC PRODUCTS [Concomitant]
  2. PROCRIT [Concomitant]
     Dates: start: 19990101
  3. CONTRAST MEDIA [Suspect]
     Indication: NUCLEAR MAGNETIC RESONANCE IMAGING
     Dates: start: 20001221, end: 20001221
  4. CONTRAST MEDIA [Suspect]
     Indication: HAEMORRHAGE INTRACRANIAL
     Dates: start: 20020423, end: 20020423
  5. CONTRAST MEDIA [Suspect]
     Dates: start: 20061211, end: 20061211
  6. CONTRAST MEDIA [Suspect]
     Dates: start: 20080325, end: 20080325
  7. CONTRAST MEDIA [Suspect]
     Dates: start: 19970718, end: 19970718
  8. CONTRAST MEDIA [Suspect]
     Dates: start: 20000830, end: 20000830
  9. PREDNISONE [Concomitant]
  10. NEURONTIN [Concomitant]
  11. SYNTHROID [Concomitant]
  12. MAGNEVIST [Suspect]
     Route: 042
     Dates: start: 20020326
  13. MAGNEVIST [Suspect]
     Route: 042
     Dates: start: 20010103, end: 20010103
  14. MAGNEVIST [Suspect]
     Route: 042
     Dates: start: 20040102, end: 20040102
  15. MULTIHANCE [Suspect]
     Indication: NUCLEAR MAGNETIC RESONANCE IMAGING BRAIN
     Route: 042
     Dates: start: 20080111, end: 20080111
  16. CONTRAST MEDIA [Suspect]
     Dates: start: 20041203, end: 20041203
  17. CONTRAST MEDIA [Suspect]
     Dates: start: 20030813, end: 20030813
  18. CONTRAST MEDIA [Suspect]
     Dates: start: 19990615, end: 19990615
  19. COUMADIN [Concomitant]
     Dates: start: 19990101
  20. ZOFRAN [Concomitant]
  21. AMITRIPTYLINE HCL [Concomitant]
  22. ATIVAN [Concomitant]
  23. NEPHROCAPS [Concomitant]
     Dates: start: 20090101
  24. MAGNEVIST [Suspect]
     Dosage: 14 AND 16 ML
     Route: 042
     Dates: start: 20051215, end: 20051215
  25. MULTIHANCE [Suspect]
     Dosage: 17
     Route: 042
     Dates: start: 20080331, end: 20080331
  26. LASIX [Concomitant]
  27. LIPITOR [Concomitant]
  28. CLARITIN [Concomitant]
  29. MAGNEVIST [Suspect]
     Route: 042
     Dates: start: 20021230, end: 20021230
  30. METOPROLOL TARTRATE [Concomitant]
     Dates: start: 20090101
  31. CONTRAST MEDIA [Suspect]
     Dates: start: 20000323, end: 20000323
  32. OXYCONTIN [Concomitant]
  33. PROHANCE [Suspect]
     Indication: NUCLEAR MAGNETIC RESONANCE IMAGING
  34. MULTIHANCE [Suspect]
     Indication: NUCLEAR MAGNETIC RESONANCE IMAGING
     Route: 042
     Dates: start: 20080103, end: 20080103
  35. CONTRAST MEDIA [Suspect]
     Dates: start: 19990915, end: 19990915
  36. RENAGEL [Concomitant]
     Dates: start: 19990101
  37. CALCITRIOL [Concomitant]
  38. MAGNEVIST [Suspect]
     Route: 042
     Dates: start: 20061211, end: 20061211
  39. OPTIMARK [Suspect]
     Indication: NUCLEAR MAGNETIC RESONANCE IMAGING
  40. CONTRAST MEDIA [Suspect]
     Indication: ANGIOGRAM
     Dates: start: 20011108, end: 20011108
  41. CONTRAST MEDIA [Suspect]
     Route: 042
     Dates: start: 20050629, end: 20050629
  42. RANITIDINE [Concomitant]
  43. ZETIA [Concomitant]
  44. DILANTIN [Concomitant]
  45. CHLORTHALIDONE [Concomitant]
  46. PAXIL [Concomitant]
  47. MAGNEVIST [Suspect]
     Indication: NUCLEAR MAGNETIC RESONANCE IMAGING
     Route: 042
     Dates: start: 20020318, end: 20020318
  48. CONTRAST MEDIA [Suspect]
     Dates: start: 20010305, end: 20010305
  49. CONTRAST MEDIA [Suspect]
     Dates: start: 20020910, end: 20020910
  50. OMNISCAN [Suspect]
     Indication: NUCLEAR MAGNETIC RESONANCE IMAGING BRAIN
     Dates: start: 19980601, end: 19980601

REACTIONS (1)
  - NEPHROGENIC SYSTEMIC FIBROSIS [None]
